FAERS Safety Report 24655602 (Version 1)
Quarter: 2024Q4

REPORT INFORMATION
  Report Type: Spontaneous
  Country: CN (occurrence: CN)
  Receive Date: 20241123
  Receipt Date: 20241123
  Transmission Date: 20250115
  Serious: Yes (Other)
  Sender: ACCORD
  Company Number: CN-MLMSERVICE-20241106-PI251195-00077-1

PATIENT
  Age: 57 Year
  Sex: Male

DRUGS (6)
  1. OXALIPLATIN [Suspect]
     Active Substance: OXALIPLATIN
     Indication: Rectal cancer stage IV
     Dosage: OXALIPLATIN (130MG/M2 INTRAVENOUSLY ON DAY 1)- TOTAL OF 2 CYCLES
     Dates: start: 2020, end: 2020
  2. CAPECITABINE [Suspect]
     Active Substance: CAPECITABINE
     Indication: Rectal cancer stage IV
     Dosage: CAPECITABINE (1500 MG ORALLY TWICE DAILY ON DAYS 1-14)) EVERY 3 WEEKS- TOTAL OF 2 CYCLES
     Route: 048
     Dates: start: 2020, end: 2021
  3. CAPECITABINE [Suspect]
     Active Substance: CAPECITABINE
     Indication: Rectal cancer stage IV
     Dosage: CAPECITABINE (1500 MG ORALLY TWICE DAILY ON DAYS 1-14)- TOTAL OF 6 CYCLES
     Route: 048
     Dates: start: 2020, end: 2021
  4. CAPECITABINE [Suspect]
     Active Substance: CAPECITABINE
     Indication: Metastases to liver
     Dosage: CAPECITABINE (1500 MG ORALLY TWICE DAILY ON DAYS 1-4)) EVERY 3 WEEKS- TOTAL OF 2 CYCLES
     Route: 048
     Dates: start: 2020, end: 2021
  5. OXALIPLATIN [Suspect]
     Active Substance: OXALIPLATIN
     Indication: Metastases to liver
     Dosage: OXALIPLATIN (130MG/M2 INTRAVENOUSLY ON DAY 1)- TOTAL OF 2 CYCLES
     Dates: start: 2020, end: 2020
  6. OXALIPLATIN [Suspect]
     Active Substance: OXALIPLATIN
     Indication: Rectal cancer stage IV
     Dosage: OXALIPLATIN (100MG/M2 INTRAVENOUSLY ON DAY 1)- TOTAL OF 6 CYCLES
     Dates: start: 2020, end: 2021

REACTIONS (2)
  - Nausea [Unknown]
  - Granulocytopenia [Unknown]
